FAERS Safety Report 18380505 (Version 1)
Quarter: 2020Q4

REPORT INFORMATION
  Report Type: Spontaneous
  Country: US (occurrence: US)
  Receive Date: 20201013
  Receipt Date: 20201013
  Transmission Date: 20210114
  Serious: Yes (Other)
  Sender: FDA-Public Use
  Company Number: US-009507513-2010USA002950

PATIENT
  Age: 52 Year
  Sex: Male

DRUGS (7)
  1. MARAVIROC [Concomitant]
     Active Substance: MARAVIROC
  2. COBICISTAT (+) DARUNAVIR [Concomitant]
     Active Substance: COBICISTAT\DARUNAVIR ETHANOLATE
  3. BLEOMYCIN [Concomitant]
     Active Substance: BLEOMYCIN SULFATE
  4. VINBLASTINE SULFATE. [Concomitant]
     Active Substance: VINBLASTINE SULFATE
  5. 3TC COMPLEX [Concomitant]
     Active Substance: LAMIVUDINE\ZIDOVUDINE
  6. DOXORUBICIN [Concomitant]
     Active Substance: DOXORUBICIN
  7. ISENTRESS [Suspect]
     Active Substance: RALTEGRAVIR POTASSIUM
     Indication: HIV INFECTION
     Dosage: UNK
     Route: 048

REACTIONS (2)
  - Pancreatitis [Unknown]
  - Lymphoma [Unknown]

NARRATIVE: CASE EVENT DATE: 2019
